FAERS Safety Report 8444757-1 (Version None)
Quarter: 2012Q2

REPORT INFORMATION
  Report Type: 
  Country: None (occurrence: None)
  Receive Date: 20120618
  Receipt Date: 20120607
  Transmission Date: 20120825
  Serious: Yes (Other)
  Sender: FDA-Public Use
  Company Number: US-ASTRAZENECA-2012SE38340

PATIENT
  Sex: Female

DRUGS (5)
  1. TOPROL-XL [Suspect]
     Route: 048
  2. THYROID PILL [Concomitant]
  3. NORVASC [Concomitant]
  4. WARFARIN SODIUM [Concomitant]
  5. CRESTOR [Suspect]
     Route: 048

REACTIONS (6)
  - CEREBROVASCULAR ACCIDENT [None]
  - ARTHRALGIA [None]
  - BREAST CANCER [None]
  - PAIN IN EXTREMITY [None]
  - OSTEOPOROSIS [None]
  - SPINAL OSTEOARTHRITIS [None]
